FAERS Safety Report 10267049 (Version 1)
Quarter: 2014Q2

REPORT INFORMATION
  Report Type: Spontaneous
  Country: US (occurrence: US)
  Receive Date: 20140630
  Receipt Date: 20140630
  Transmission Date: 20141212
  Serious: No
  Sender: FDA-Public Use
  Company Number: US-SHIRE-US201403506

PATIENT
  Age: 40 Year
  Sex: Male
  Weight: 90.7 kg

DRUGS (3)
  1. VYVANSE [Suspect]
     Indication: ATTENTION DEFICIT/HYPERACTIVITY DISORDER
     Dosage: 60 MG, 1X/DAY:QD
     Route: 048
     Dates: start: 201405
  2. LORAZEPAM [Concomitant]
     Indication: ANXIETY
     Dosage: 0.5 MG, AS REQ^D
     Route: 048
     Dates: start: 201401
  3. NSAID^S [Concomitant]
     Indication: MUSCULOSKELETAL PAIN
     Dosage: 75 MG, 1X/DAY:QD
     Route: 048
     Dates: start: 20140619

REACTIONS (1)
  - Bruxism [Not Recovered/Not Resolved]
